FAERS Safety Report 6580401-6 (Version None)
Quarter: 2010Q1

REPORT INFORMATION
  Report Type: 
  Country: None (occurrence: None)
  Receive Date: 20100212
  Receipt Date: 20100202
  Transmission Date: 20100710
  Serious: Yes (Hospitalization, Other)
  Sender: FDA-Public Use
  Company Number: PHHY2009MX54556

PATIENT
  Sex: Female

DRUGS (3)
  1. DIOVAN [Suspect]
     Indication: HYPERTENSION
     Dosage: 1 DF (80 MG) DAILY
     Route: 048
     Dates: start: 20000101, end: 20091213
  2. DIOVAN [Suspect]
     Dosage: UNK
     Dates: start: 20090220
  3. BUMETANIDE [Concomitant]

REACTIONS (8)
  - ARRHYTHMIA [None]
  - CONDITION AGGRAVATED [None]
  - HYPOTENSION [None]
  - OEDEMA [None]
  - PHARYNGITIS [None]
  - PNEUMONIA [None]
  - RESPIRATORY RATE INCREASED [None]
  - THROMBOPHLEBITIS [None]
